FAERS Safety Report 21108588 (Version 1)
Quarter: 2022Q3

REPORT INFORMATION
  Report Type: Spontaneous
  Country: NL (occurrence: NL)
  Receive Date: 20220721
  Receipt Date: 20220721
  Transmission Date: 20221026
  Serious: Yes (Other)
  Sender: FDA-Public Use
  Company Number: None

PATIENT
  Sex: Female
  Weight: 98 kg

DRUGS (3)
  1. HYDREA [Suspect]
     Active Substance: HYDROXYUREA
     Indication: Polycythaemia vera
     Dosage: 1DD1
     Route: 065
     Dates: start: 20220207
  2. METFORMINE TABLET   500MG / Brand name not specified [Concomitant]
     Dosage: 1DD500MG TABLET
  3. METOPROLOL [Concomitant]
     Active Substance: METOPROLOL
     Dosage: TABLET MET GEREGULEERDE AFGIFTE, 100 MG (MILLIGRAM)

REACTIONS (3)
  - Erysipelas [Recovered/Resolved]
  - Oral fungal infection [Recovered/Resolved]
  - Anaemia [Not Recovered/Not Resolved]
